FAERS Safety Report 12507316 (Version 1)
Quarter: 2016Q2

REPORT INFORMATION
  Report Type: Report from Study
  Country: US (occurrence: US)
  Receive Date: 20160629
  Receipt Date: 20160629
  Transmission Date: 20160815
  Serious: Yes (Death, Hospitalization)
  Sender: FDA-Public Use
  Company Number: US-BIOGEN-2016BI00255804

PATIENT
  Age: 48 Year
  Sex: Female

DRUGS (1)
  1. TYSABRI [Suspect]
     Active Substance: NATALIZUMAB
     Indication: MULTIPLE SCLEROSIS
     Route: 042
     Dates: start: 20120822

REACTIONS (5)
  - Syncope [Fatal]
  - Cardiac failure [Fatal]
  - Death [Fatal]
  - Multiple sclerosis [Fatal]
  - Respiratory disorder [Fatal]

NARRATIVE: CASE EVENT DATE: 201606
